FAERS Safety Report 19868175 (Version 1)
Quarter: 2021Q3

REPORT INFORMATION
  Report Type: Spontaneous
  Country: US (occurrence: US)
  Receive Date: 20210922
  Receipt Date: 20210922
  Transmission Date: 20211014
  Serious: No
  Sender: FDA-Public Use
  Company Number: US-UNICHEM PHARMACEUTICALS (USA) INC-UCM202104-000369

PATIENT
  Age: 66 Year
  Sex: Female
  Weight: 75.29 kg

DRUGS (1)
  1. CLONIDINE HCL [Suspect]
     Active Substance: CLONIDINE HYDROCHLORIDE
     Indication: PRODUCT USED FOR UNKNOWN INDICATION
     Dates: start: 20210418

REACTIONS (7)
  - Chest discomfort [Not Recovered/Not Resolved]
  - Abdominal pain [Recovered/Resolved]
  - Product physical issue [Unknown]
  - Oropharyngeal pain [Not Recovered/Not Resolved]
  - Abdominal pain upper [Recovering/Resolving]
  - Glossitis [Not Recovered/Not Resolved]
  - Palpitations [Not Recovered/Not Resolved]

NARRATIVE: CASE EVENT DATE: 20210418
